FAERS Safety Report 4611970-0 (Version None)
Quarter: 2005Q1

REPORT INFORMATION
  Report Type: 
  Country: None (occurrence: None)
  Receive Date: 20050317
  Receipt Date: 20050311
  Transmission Date: 20050727
  Serious: Yes (Hospitalization)
  Sender: FDA-Public Use
  Company Number: FR-MERCK-0503FRA00055

PATIENT
  Age: 71 Year
  Sex: Male
  Weight: 79 kg

DRUGS (10)
  1. SERTRALINE HYDROCHLORIDE [Suspect]
     Route: 048
     Dates: start: 20050109, end: 20050121
  2. AMLODIPINE BESYLATE [Suspect]
     Route: 048
     Dates: start: 20041203, end: 20050201
  3. CLOXACILLIN SODIUM [Concomitant]
     Route: 065
  4. PANTOPRAZOLE SODIUM [Concomitant]
     Route: 065
  5. REPAGLINIDE [Concomitant]
     Route: 065
  6. ASPIRIN LYSINE [Concomitant]
     Route: 065
  7. AMBROXOL HYDROCHLORIDE [Suspect]
     Route: 048
     Dates: start: 20050116, end: 20050120
  8. ZOCOR [Suspect]
     Route: 048
     Dates: start: 20041219, end: 20050121
  9. ALPRAZOLAM [Suspect]
     Route: 048
     Dates: start: 20041219, end: 20050120
  10. ZOLPIDEM TARTRATE [Suspect]
     Route: 048
     Dates: start: 20041219, end: 20050221

REACTIONS (6)
  - DRUG ERUPTION [None]
  - ERYTHEMA [None]
  - OEDEMA [None]
  - PRURITUS [None]
  - PURPURA [None]
  - RASH MACULO-PAPULAR [None]
